FAERS Safety Report 20556270 (Version 1)
Quarter: 2022Q1

REPORT INFORMATION
  Report Type: Spontaneous
  Country: None (occurrence: AU)
  Receive Date: 20220305
  Receipt Date: 20220305
  Transmission Date: 20220423
  Serious: Yes (Other)
  Sender: FDA-Public Use
  Company Number: AU-Ascend Therapeutics US, LLC-2126481

PATIENT
  Age: 53 Year
  Sex: Female

DRUGS (4)
  1. ESTROGEL [Suspect]
     Active Substance: ESTRADIOL
     Indication: Menopausal symptoms
     Route: 062
  2. ESTROGEL [Suspect]
     Active Substance: ESTRADIOL
  3. PROMETRIUM [Suspect]
     Active Substance: PROGESTERONE
     Route: 048
  4. ESTROGEL [Suspect]
     Active Substance: ESTRADIOL
     Route: 062

REACTIONS (2)
  - Syncope [Recovered/Resolved]
  - Feeling abnormal [Recovered/Resolved]
